FAERS Safety Report 7938231-6 (Version None)
Quarter: 2011Q4

REPORT INFORMATION
  Report Type: 
  Country: None (occurrence: None)
  Receive Date: 20111123
  Receipt Date: 20111114
  Transmission Date: 20120403
  Serious: Yes (Other)
  Sender: FDA-Public Use
  Company Number: CN-ASTRAZENECA-2011SE68685

PATIENT

DRUGS (3)
  1. PROPOFOL [Suspect]
     Dosage: 10-20MG
     Route: 042
  2. FENTANYL [Suspect]
     Indication: ANAESTHESIA PROCEDURE
     Dosage: 1UG/KG
     Route: 042
  3. PROPOFOL [Suspect]
     Indication: ANAESTHESIA PROCEDURE
     Dosage: 1MG/KG
     Route: 042

REACTIONS (1)
  - OXYGEN SATURATION DECREASED [None]
